FAERS Safety Report 11447127 (Version 1)
Quarter: 2015Q3

REPORT INFORMATION
  Report Type: Spontaneous
  Country: US (occurrence: US)
  Receive Date: 20150831
  Receipt Date: 20150831
  Transmission Date: 20151125
  Serious: No
  Sender: FDA-Public Use
  Company Number: US-ELI_LILLY_AND_COMPANY-US200902006696

PATIENT
  Sex: Female

DRUGS (1)
  1. CYMBALTA [Suspect]
     Active Substance: DULOXETINE HYDROCHLORIDE
     Dosage: 60 MG, UNK
     Dates: start: 200810

REACTIONS (11)
  - Cardiac disorder [Unknown]
  - Nightmare [Unknown]
  - Paraesthesia [Unknown]
  - Alopecia [Unknown]
  - Oropharyngeal pain [Unknown]
  - Thinking abnormal [Unknown]
  - Drug withdrawal syndrome [Unknown]
  - Delusion [Unknown]
  - Medication error [Recovered/Resolved]
  - Pain in jaw [Unknown]
  - Arthralgia [Unknown]

NARRATIVE: CASE EVENT DATE: 200810
